FAERS Safety Report 18316432 (Version 1)
Quarter: 2020Q3

REPORT INFORMATION
  Report Type: Report from Study
  Country: None (occurrence: US)
  Receive Date: 20200927
  Receipt Date: 20200927
  Transmission Date: 20201103
  Serious: Yes (Other)
  Sender: FDA-Public Use
  Company Number: US-ABBVIE-20K-163-3543320-00

PATIENT
  Sex: Female

DRUGS (1)
  1. HUMIRA [Suspect]
     Active Substance: ADALIMUMAB
     Indication: RHEUMATOID ARTHRITIS
     Dosage: CITRATE FREE
     Route: 058

REACTIONS (6)
  - Poor quality sleep [Unknown]
  - Myalgia [Recovering/Resolving]
  - Tinnitus [Recovering/Resolving]
  - Pain [Unknown]
  - Headache [Recovering/Resolving]
  - Nausea [Recovering/Resolving]
